FAERS Safety Report 24737924 (Version 1)
Quarter: 2024Q4

REPORT INFORMATION
  Report Type: Spontaneous
  Country: US (occurrence: US)
  Receive Date: 20241216
  Receipt Date: 20241216
  Transmission Date: 20250115
  Serious: No
  Sender: RECORDATI
  Company Number: US-RECORDATI RARE DISEASE INC.-2024008384

PATIENT

DRUGS (14)
  1. SIGNIFOR LAR [Suspect]
     Active Substance: PASIREOTIDE PAMOATE
     Indication: Pituitary-dependent Cushing^s syndrome
     Dosage: 20 MG ((1 EACH), INJ. KIT COMP) EVERY 28 DAYS
     Route: 030
  2. SIGNIFOR LAR [Suspect]
     Active Substance: PASIREOTIDE PAMOATE
     Indication: Acromegaly
     Dosage: 30 MG ((1 EACH), INJ. KIT COMP) EVERY 28 DAYS
     Route: 030
     Dates: start: 20241030
  3. ALBUTEROL SULFATE [Concomitant]
     Active Substance: ALBUTEROL SULFATE
     Indication: Product used for unknown indication
     Dosage: 108 (90 BASE) AEROSOL, PRN (AS NEEDED)
     Dates: start: 20210802
  4. ALPRAZOLAM [Concomitant]
     Active Substance: ALPRAZOLAM
     Indication: Product used for unknown indication
     Dosage: 0.25 MG (ORAL TABLET 0.25 MG) PRN (AS NEEDED)
     Route: 048
     Dates: start: 20220802
  5. FLUOXETINE HYDROCHLORIDE [Concomitant]
     Active Substance: FLUOXETINE HYDROCHLORIDE
     Indication: Product used for unknown indication
     Dosage: 40 MG, QD (ORAL CAPSULE 40 MG)
     Route: 048
     Dates: start: 20220802
  6. GUANFACINE HYDROCHLORIDE [Concomitant]
     Active Substance: GUANFACINE HYDROCHLORIDE
     Indication: Product used for unknown indication
     Dosage: 1 MG, QD (ORAL TABLET 1 MG)
     Route: 048
     Dates: start: 20240809, end: 2024
  7. GUANFACINE HYDROCHLORIDE [Concomitant]
     Active Substance: GUANFACINE HYDROCHLORIDE
     Dosage: 2 MG, QD (ORAL TABLET 2 MG)
     Route: 048
     Dates: start: 20241001
  8. DIETARY SUPPLEMENT [Concomitant]
     Active Substance: DIETARY SUPPLEMENT
     Indication: Product used for unknown indication
     Dosage: 100 MG, QD (ORAL CAPSULE 100 MG)
     Route: 048
     Dates: start: 20220802
  9. MAGNESIUM CITRATE [Concomitant]
     Active Substance: MAGNESIUM CITRATE
     Indication: Product used for unknown indication
     Dosage: 100 MG, QD (ORAL CAPSULE 100)
     Route: 048
     Dates: start: 20220802
  10. MAGNESIUM GLYCINATE [Concomitant]
     Active Substance: MAGNESIUM GLYCINATE
     Indication: Product used for unknown indication
     Dosage: 100 MG, QD (ORAL CAPSULE 10)
     Route: 048
     Dates: start: 20220802
  11. MONTELUKAST SODIUM [Concomitant]
     Active Substance: MONTELUKAST\MONTELUKAST SODIUM
     Indication: Product used for unknown indication
     Dosage: 10 MG, QD (ORAL TABLET 10 M)
     Route: 048
     Dates: start: 20220802
  12. PHOSPHATIDYL SERINE [Concomitant]
     Active Substance: PHOSPHATIDYL SERINE
     Indication: Product used for unknown indication
     Dosage: 100 MG, QD (ORAL CAPSULE 100)
     Route: 048
     Dates: start: 20220802
  13. PROTONIX [Concomitant]
     Active Substance: PANTOPRAZOLE SODIUM
     Indication: Product used for unknown indication
     Dosage: 40 MG, EVERY 2 DAYS (ORAL TABLET 40 MG, DELAYED RELEASE)
     Route: 048
     Dates: start: 20220802
  14. ZYRTEC [Concomitant]
     Active Substance: CETIRIZINE HYDROCHLORIDE
     Indication: Product used for unknown indication
     Dosage: 10 MG, QD (ORAL TABLET 10 MG)
     Route: 048
     Dates: start: 20220802

REACTIONS (1)
  - Ophthalmic migraine [Not Recovered/Not Resolved]

NARRATIVE: CASE EVENT DATE: 20240801
